FAERS Safety Report 19399857 (Version 3)
Quarter: 2022Q2

REPORT INFORMATION
  Report Type: Spontaneous
  Country: US (occurrence: US)
  Receive Date: 20210610
  Receipt Date: 20220407
  Transmission Date: 20220721
  Serious: Yes (Other)
  Sender: FDA-Public Use
  Company Number: US-PFIZER INC-2021523513

PATIENT
  Age: 55 Year
  Sex: Female

DRUGS (1)
  1. XELJANZ XR [Suspect]
     Active Substance: TOFACITINIB CITRATE
     Indication: Rheumatoid arthritis
     Dosage: 11 MG, DAILY, (ONCE DAILY)
     Route: 048
     Dates: start: 2019

REACTIONS (8)
  - Gallbladder disorder [Unknown]
  - Product dose omission issue [Unknown]
  - Arthralgia [Unknown]
  - Arthropathy [Unknown]
  - Condition aggravated [Unknown]
  - Limb discomfort [Unknown]
  - Muscle spasms [Unknown]
  - Memory impairment [Unknown]

NARRATIVE: CASE EVENT DATE: 20220101
